FAERS Safety Report 23493990 (Version 1)
Quarter: 2024Q1

REPORT INFORMATION
  Report Type: Spontaneous
  Country: US (occurrence: None)
  Receive Date: 20240206
  Receipt Date: 20240206
  Transmission Date: 20240410
  Serious: Yes (Hospitalization)
  Sender: FDA-Public Use
  Company Number: None

PATIENT
  Sex: Male

DRUGS (6)
  1. TRACLEER [Suspect]
     Active Substance: BOSENTAN
     Indication: Pulmonary arterial hypertension
     Dosage: TAKE ONE HALF TABLET AND DISSOLVE IN 5ML OF WATER. GIVE 1.6ML BY MOUTH EVERY 12 HOURS. ?
     Route: 048
     Dates: start: 202312
  2. SILDENAFIL [Concomitant]
     Active Substance: SILDENAFIL
  3. REMODULIN [Concomitant]
     Active Substance: TREPROSTINIL
  4. REMUNITY CART W/FILL AID [Concomitant]
  5. TRIAMCINOLONE ACET CRM [Concomitant]
  6. LIDOCAINE/PRILOCAINE CRM [Concomitant]

REACTIONS (1)
  - Hospitalisation [None]
